FAERS Safety Report 24796930 (Version 1)
Quarter: 2025Q1

REPORT INFORMATION
  Report Type: Other
  Country: US (occurrence: US)
  Receive Date: 20250101
  Receipt Date: 20250101
  Transmission Date: 20250408
  Serious: Yes (Death, Other)
  Sender: AVEVA DRUG DELIVERY SYSTEMS INC.
  Company Number: US-AVEVA-000959

PATIENT
  Age: 31 Year
  Sex: Male

DRUGS (2)
  1. FENTANYL [Suspect]
     Active Substance: FENTANYL
     Indication: Product used for unknown indication
     Route: 065
  2. FENTANYL [Suspect]
     Active Substance: FENTANYL
     Indication: Product used for unknown indication

REACTIONS (1)
  - Drug abuse [Fatal]
